FAERS Safety Report 4365396-8 (Version None)
Quarter: 2004Q2

REPORT INFORMATION
  Report Type: 
  Country: None (occurrence: None)
  Receive Date: 20040525
  Receipt Date: 20040511
  Transmission Date: 20050107
  Serious: Yes (Disabling)
  Sender: FDA-Public Use
  Company Number: FRP04000193

PATIENT
  Age: 64 Year
  Sex: Female

DRUGS (2)
  1. DIDRONEL [Suspect]
     Indication: OSTEOPOROSIS
     Dosage: 400 MG, CYCLIC 1/D, ORAL
     Route: 048
     Dates: start: 20031001, end: 20031007
  2. DIDRONEL [Suspect]
     Indication: OSTEOPOROSIS
     Dosage: 400 MG, CYCLIC 1/D, ORAL
     Route: 048
     Dates: start: 20031010, end: 20031016

REACTIONS (8)
  - ABDOMINAL PAIN UPPER [None]
  - AGEUSIA [None]
  - ANOREXIA [None]
  - NAUSEA [None]
  - TONGUE COATED [None]
  - TONGUE DISCOLOURATION [None]
  - VOMITING [None]
  - WEIGHT DECREASED [None]
